FAERS Safety Report 25686551 (Version 1)
Quarter: 2025Q3

REPORT INFORMATION
  Report Type: Spontaneous
  Country: EU (occurrence: EU)
  Receive Date: 20250816
  Receipt Date: 20250816
  Transmission Date: 20251020
  Serious: Yes (Death)
  Sender: HETERO
  Company Number: None

PATIENT
  Age: 76 Year
  Sex: Male

DRUGS (1)
  1. DAPTOMYCIN [Suspect]
     Active Substance: DAPTOMYCIN
     Indication: Postoperative wound infection
     Route: 042
     Dates: start: 20250529, end: 20250603

REACTIONS (1)
  - Eosinophilic pneumonia [Fatal]

NARRATIVE: CASE EVENT DATE: 20250602
